FAERS Safety Report 15012512 (Version 1)
Quarter: 2018Q2

REPORT INFORMATION
  Report Type: Spontaneous
  Country: ES (occurrence: ES)
  Receive Date: 20180614
  Receipt Date: 20180614
  Transmission Date: 20180711
  Serious: Yes (Other)
  Sender: FDA-Public Use
  Company Number: ES-JNJFOC-20180611961

PATIENT
  Sex: Female

DRUGS (1)
  1. SIMPONI [Suspect]
     Active Substance: GOLIMUMAB
     Indication: RHEUMATOID ARTHRITIS
     Dosage: JAN/FEB-2018
     Route: 058
     Dates: start: 2018, end: 2018

REACTIONS (1)
  - Ovarian granulosa cell tumour [Unknown]

NARRATIVE: CASE EVENT DATE: 2018
